FAERS Safety Report 6410519-X (Version None)
Quarter: 2009Q4

REPORT INFORMATION
  Report Type: 
  Country: None (occurrence: None)
  Receive Date: 20091022
  Receipt Date: 20091022
  Transmission Date: 20100525
  Serious: Yes (Hospitalization)
  Sender: FDA-Public Use
  Company Number: None

PATIENT
  Sex: Male
  Weight: 75 kg

DRUGS (1)
  1. AVELOX [Suspect]
     Indication: PNEUMONIA
     Dosage: 400 MG ONCE IV
     Route: 042
     Dates: start: 20090807, end: 20090807

REACTIONS (2)
  - INFUSION SITE RASH [None]
  - INFUSION SITE URTICARIA [None]
